FAERS Safety Report 6768260-X (Version None)
Quarter: 2010Q2

REPORT INFORMATION
  Report Type: 
  Country: None (occurrence: None)
  Receive Date: 20100610
  Receipt Date: 20100603
  Transmission Date: 20101027
  Serious: Yes (Death, Hospitalization)
  Sender: FDA-Public Use
  Company Number: 100980

PATIENT
  Age: 19 Year
  Sex: Male

DRUGS (1)
  1. AZATHIOPRINE SODIUM [Suspect]
     Indication: CROHN'S DISEASE
     Dosage: 2-2.5MG/KG/ 6 YEARS

REACTIONS (5)
  - ABDOMINAL DISTENSION [None]
  - FATIGUE [None]
  - HEPATOSPLENIC T-CELL LYMPHOMA [None]
  - MULTI-ORGAN FAILURE [None]
  - SPLENOMEGALY [None]
